FAERS Safety Report 5455790-6 (Version None)
Quarter: 2007Q3

REPORT INFORMATION
  Report Type: 
  Country: None (occurrence: None)
  Receive Date: 20070914
  Receipt Date: 20070831
  Transmission Date: 20080115
  Serious: Yes (Hospitalization)
  Sender: FDA-Public Use
  Company Number: 2007BI018736

PATIENT
  Age: 42 Year
  Sex: Female
  Weight: 76.2043 kg

DRUGS (4)
  1. NATALIZUMAB [Suspect]
     Indication: MULTIPLE SCLEROSIS
     Dosage: 300 MG; QM; IV
     Route: 042
     Dates: start: 20070706
  2. MULTI-VITAMIN [Concomitant]
  3. TYLENOL [Concomitant]
  4. NEURONTIN [Concomitant]

REACTIONS (26)
  - ANXIETY [None]
  - APHASIA [None]
  - ARTHROPOD BITE [None]
  - BIPOLAR DISORDER [None]
  - BLOOD DISORDER [None]
  - CHEST PAIN [None]
  - CONVULSION [None]
  - DEPRESSION [None]
  - DERMATITIS CONTACT [None]
  - DYSSTASIA [None]
  - FALL [None]
  - FATIGUE [None]
  - GAIT DISTURBANCE [None]
  - INFECTION [None]
  - LIVER FUNCTION TEST ABNORMAL [None]
  - LOSS OF CONSCIOUSNESS [None]
  - MEMORY IMPAIRMENT [None]
  - MENTAL DISORDER [None]
  - MOVEMENT DISORDER [None]
  - MYALGIA [None]
  - NAUSEA [None]
  - ROAD TRAFFIC ACCIDENT [None]
  - SCHIZOPHRENIA [None]
  - SUICIDAL IDEATION [None]
  - VOMITING [None]
  - WHITE BLOOD CELL COUNT INCREASED [None]
